FAERS Safety Report 9272477 (Version 2)
Quarter: 2013Q2

REPORT INFORMATION
  Report Type: Spontaneous
  Country: US (occurrence: US)
  Receive Date: 20130506
  Receipt Date: 20130523
  Transmission Date: 20140414
  Serious: Yes (Other)
  Sender: FDA-Public Use
  Company Number: US-GLAXOSMITHKLINE-A1021673A

PATIENT
  Age: 69 Year
  Sex: Female

DRUGS (9)
  1. LOVAZA [Suspect]
     Indication: BLOOD TRIGLYCERIDES INCREASED
     Dosage: 2CAP TWICE PER DAY
     Route: 048
  2. CRESTOR [Suspect]
  3. LOPRESSOR [Concomitant]
  4. FLUTICASONE [Concomitant]
  5. HYDROCHLOROTHIAZIDE [Concomitant]
  6. BABY ASPIRIN [Concomitant]
  7. VITAMIN C [Concomitant]
  8. METFORMIN [Concomitant]
  9. ANTIBIOTIC [Concomitant]

REACTIONS (9)
  - Lymphoma [Recovered/Resolved]
  - Cholecystectomy [Recovered/Resolved]
  - Gallbladder disorder [Unknown]
  - Cholelithiasis [Recovered/Resolved]
  - Tonsillectomy [Recovered/Resolved]
  - Weight decreased [Recovered/Resolved]
  - Night sweats [Recovered/Resolved]
  - Insomnia [Recovered/Resolved]
  - Tonsillitis [Unknown]
